FAERS Safety Report 24261716 (Version 1)
Quarter: 2024Q3

REPORT INFORMATION
  Report Type: Report from Study
  Country: US (occurrence: US)
  Receive Date: 20240829
  Receipt Date: 20240829
  Transmission Date: 20241017
  Serious: Yes (Hospitalization)
  Sender: ROCHE
  Company Number: US-ROCHE-10000020843

PATIENT
  Age: 54 Year
  Sex: Female

DRUGS (1)
  1. OCREVUS [Suspect]
     Active Substance: OCRELIZUMAB
     Indication: Relapsing multiple sclerosis
     Dosage: 300MG VIAL, 03/08/2021, LAST DATE OF TREATMENT
     Route: 042
     Dates: start: 20190228, end: 20231116

REACTIONS (2)
  - Infection [Unknown]
  - Urinary tract infection [Not Recovered/Not Resolved]
